FAERS Safety Report 18891852 (Version 4)
Quarter: 2021Q2

REPORT INFORMATION
  Report Type: Spontaneous
  Country: US (occurrence: US)
  Receive Date: 20210215
  Receipt Date: 20210503
  Transmission Date: 20210717
  Serious: No
  Sender: FDA-Public Use
  Company Number: NVSC2021US030375

PATIENT
  Sex: Female
  Weight: 77 kg

DRUGS (1)
  1. ZOFRAN [Suspect]
     Active Substance: ONDANSETRON HYDROCHLORIDE
     Indication: HYPEREMESIS GRAVIDARUM
     Dosage: 4 DF, QD
     Route: 048
     Dates: start: 20000804, end: 20000901

REACTIONS (6)
  - Anxiety [Unknown]
  - Product use in unapproved indication [Unknown]
  - Emotional distress [Unknown]
  - Injury [Unknown]
  - Depression [Unknown]
  - Maternal exposure during pregnancy [Unknown]
